FAERS Safety Report 10094577 (Version 2)
Quarter: 2014Q2

REPORT INFORMATION
  Report Type: Spontaneous
  Country: US (occurrence: US)
  Receive Date: 20140422
  Receipt Date: 20140527
  Transmission Date: 20141212
  Serious: No
  Sender: FDA-Public Use
  Company Number: US-PFIZER INC-2014111089

PATIENT
  Age: 39 Year
  Sex: 0

DRUGS (7)
  1. NEURONTIN [Suspect]
     Dosage: UNK
  2. LASIX [Suspect]
     Dosage: UNK
  3. NORCO [Suspect]
     Dosage: UNK
  4. ZANAFLEX [Suspect]
     Dosage: UNK
  5. PROMETHAZINE [Suspect]
     Dosage: UNK
  6. CLONAZEPAM [Suspect]
     Dosage: UNK
  7. KLOR CON M [Suspect]
     Dosage: UNK

REACTIONS (1)
  - Drug hypersensitivity [Unknown]
